FAERS Safety Report 7258559-5 (Version None)
Quarter: 2011Q1

REPORT INFORMATION
  Report Type: 
  Country: None (occurrence: None)
  Receive Date: 20110129
  Receipt Date: 20100628
  Transmission Date: 20110831
  Serious: No
  Sender: FDA-Public Use
  Company Number: US-ABBOTT-08P-163-0451031-00

PATIENT
  Sex: Female
  Weight: 56.75 kg

DRUGS (3)
  1. HUMIRA [Suspect]
     Indication: CROHN'S DISEASE
     Route: 058
     Dates: start: 20070701, end: 20071101
  2. METHOTREXATE [Concomitant]
     Indication: CROHN'S DISEASE
     Route: 058
     Dates: start: 20071101
  3. HUMIRA [Suspect]
     Route: 058
     Dates: start: 20071101

REACTIONS (3)
  - DEVICE MALFUNCTION [None]
  - INCORRECT DOSE ADMINISTERED [None]
  - DRUG INEFFECTIVE [None]
